FAERS Safety Report 6056074-8 (Version None)
Quarter: 2009Q1

REPORT INFORMATION
  Report Type: 
  Country: None (occurrence: None)
  Receive Date: 20090128
  Receipt Date: 20090121
  Transmission Date: 20090719
  Serious: Yes (Hospitalization, Other)
  Sender: FDA-Public Use
  Company Number: FR-GILEAD-2008-0017796

PATIENT
  Sex: Female

DRUGS (8)
  1. TRUVADA [Suspect]
     Indication: HIV INFECTION
     Route: 048
     Dates: start: 20080505
  2. KALETRA [Suspect]
     Indication: HIV INFECTION
     Route: 048
     Dates: start: 20080505
  3. FUZEON [Suspect]
     Indication: HIV INFECTION
     Route: 058
     Dates: start: 20080505
  4. AZADOSE [Suspect]
     Indication: OPPORTUNISTIC INFECTION
     Route: 048
     Dates: start: 20080422
  5. MALOCIDE [Suspect]
     Indication: OPPORTUNISTIC INFECTION
     Route: 048
     Dates: start: 20080422
  6. SPECIAFOLDINE [Suspect]
     Indication: NUTRITIONAL SUPPORT
     Route: 048
     Dates: start: 20080422
  7. PENTACARINAT [Suspect]
     Indication: PNEUMOCYSTIS JIROVECI PNEUMONIA
     Dates: start: 20080414
  8. BACTRIM [Suspect]
     Indication: OPPORTUNISTIC INFECTION
     Route: 048
     Dates: start: 20080404, end: 20080414

REACTIONS (1)
  - ACUTE FEBRILE NEUTROPHILIC DERMATOSIS [None]
